FAERS Safety Report 14946239 (Version 1)
Quarter: 2018Q2

REPORT INFORMATION
  Report Type: Report from Study
  Country: US (occurrence: US)
  Receive Date: 20180529
  Receipt Date: 20180529
  Transmission Date: 20180711
  Serious: No
  Sender: FDA-Public Use
  Company Number: US-SA-2018SA139846

PATIENT
  Age: 58 Year
  Sex: Female

DRUGS (11)
  1. LEVOTHYROXINE. [Concomitant]
     Active Substance: LEVOTHYROXINE
     Dosage: 150 UG
     Route: 048
     Dates: start: 20170905
  2. SYMBICORT [Concomitant]
     Active Substance: BUDESONIDE\FORMOTEROL FUMARATE DIHYDRATE
     Dosage: 2 DF
     Route: 045
     Dates: start: 20180323
  3. ALEMTUZUMAB [Suspect]
     Active Substance: ALEMTUZUMAB
     Indication: RELAPSING-REMITTING MULTIPLE SCLEROSIS
     Dosage: INTENDED DOSE: 60 MG
     Route: 041
     Dates: start: 20090112, end: 20090116
  4. PAMELOR [Concomitant]
     Active Substance: NORTRIPTYLINE HYDROCHLORIDE
     Dosage: 10 MG
     Route: 048
     Dates: start: 20101118, end: 20161201
  5. ALEMTUZUMAB [Suspect]
     Active Substance: ALEMTUZUMAB
     Dosage: INTENDED DOSE: 36 MG
     Route: 041
     Dates: start: 20140902, end: 20140904
  6. NASONEX [Concomitant]
     Active Substance: MOMETASONE FUROATE
     Dosage: 0.05 MG
     Route: 045
     Dates: start: 2006
  7. FLUTICASONE. [Concomitant]
     Active Substance: FLUTICASONE
     Dosage: 2 DF
     Route: 045
     Dates: start: 20170905
  8. HYDROCHLOROTHIAZIDE. [Concomitant]
     Active Substance: HYDROCHLOROTHIAZIDE
     Dosage: 25 MG
     Route: 048
     Dates: start: 20180323
  9. ALEMTUZUMAB [Suspect]
     Active Substance: ALEMTUZUMAB
     Dosage: INTENDED DOSE: 36 MG
     Route: 041
     Dates: start: 20100208, end: 20100210
  10. ACYCLOVIR [ACICLOVIR] [Concomitant]
     Active Substance: ACYCLOVIR
     Dosage: 400 MG
     Route: 048
     Dates: start: 20160401
  11. OMEPRAZOLE. [Concomitant]
     Active Substance: OMEPRAZOLE
     Dosage: 20 MG
     Dates: start: 20180323

REACTIONS (1)
  - Vitiligo [Unknown]

NARRATIVE: CASE EVENT DATE: 20180221
